FAERS Safety Report 24658163 (Version 1)
Quarter: 2024Q4

REPORT INFORMATION
  Report Type: Spontaneous
  Country: DE (occurrence: DE)
  Receive Date: 20241125
  Receipt Date: 20241125
  Transmission Date: 20250115
  Serious: Yes (Hospitalization, Other)
  Sender: AUROBINDO
  Company Number: DE-PFIZER INC-PV202400129216

PATIENT
  Age: 75 Year
  Sex: Female
  Weight: 75 kg

DRUGS (12)
  1. LETROZOLE [Suspect]
     Active Substance: LETROZOLE
     Indication: Breast cancer
     Dosage: 2.5 MILLIGRAM, ONCE A DAY
     Route: 048
     Dates: start: 20230512
  2. PALBOCICLIB [Suspect]
     Active Substance: PALBOCICLIB
     Indication: Breast cancer
     Dosage: 125 MILLIGRAM, DAILY (FROM DAY 1 TO DAY 21 EVERY 28-DAY CYCLE)
     Route: 048
     Dates: start: 20230512
  3. SPIRONOLACTONE [Concomitant]
     Active Substance: SPIRONOLACTONE
     Indication: Product used for unknown indication
     Dosage: UNK
     Route: 048
  4. BISOPROLOL [Concomitant]
     Active Substance: BISOPROLOL
     Indication: Hypertension
     Dosage: UNK
     Route: 048
  5. EMPAGLIFLOZIN [Concomitant]
     Active Substance: EMPAGLIFLOZIN
     Indication: Product used for unknown indication
     Dosage: UNK
     Route: 048
  6. TORSEMIDE [Concomitant]
     Active Substance: TORSEMIDE
     Indication: Hypertension
     Dosage: UNK
     Route: 048
  7. ASPIRIN [Concomitant]
     Active Substance: ASPIRIN
     Indication: Tachyarrhythmia
     Dosage: UNK
     Route: 048
  8. ALENDRONATE [Concomitant]
     Active Substance: ALENDRONATE SODIUM
     Indication: Prophylaxis
     Dosage: UNK
     Route: 048
  9. CANDESARTAN [Concomitant]
     Active Substance: CANDESARTAN
     Indication: Hypertension
     Dosage: UNK
     Route: 048
  10. PANTOPRAZOLE SODIUM [Concomitant]
     Active Substance: PANTOPRAZOLE SODIUM
     Indication: Prophylaxis
     Dosage: UNK
     Route: 048
  11. METAMIZOL [Concomitant]
     Active Substance: METAMIZOLE SODIUM
     Indication: Product used for unknown indication
     Dosage: UNK
     Route: 048
  12. APIXABAN [Concomitant]
     Active Substance: APIXABAN
     Indication: Tachyarrhythmia
     Dosage: UNK
     Route: 048

REACTIONS (2)
  - Cardiac failure acute [Unknown]
  - No adverse event [Unknown]
